FAERS Safety Report 6603292-3 (Version None)
Quarter: 2010Q1

REPORT INFORMATION
  Report Type: 
  Country: None (occurrence: None)
  Receive Date: 20100226
  Receipt Date: 20090105
  Transmission Date: 20100710
  Serious: No
  Sender: FDA-Public Use
  Company Number: A0762381A

PATIENT
  Age: 75 Year
  Sex: Male
  Weight: 70.5 kg

DRUGS (7)
  1. ALKERAN [Suspect]
     Indication: MULTIPLE MYELOMA
     Route: 048
     Dates: start: 20080101
  2. THALIDOMIDE [Suspect]
     Indication: MULTIPLE MYELOMA
     Dosage: 100MG UNKNOWN
     Route: 048
     Dates: start: 20080111, end: 20081101
  3. PREDNISONE TAB [Suspect]
     Indication: DRUG USE FOR UNKNOWN INDICATION
     Route: 065
     Dates: start: 20080101
  4. XALATAN [Concomitant]
  5. VITAMIN B COMPLEX CAP [Concomitant]
  6. FISH OIL [Concomitant]
  7. OXAZOLAM [Concomitant]

REACTIONS (8)
  - BONE PAIN [None]
  - CONDITION AGGRAVATED [None]
  - CONSTIPATION [None]
  - FEELING ABNORMAL [None]
  - MUSCLE SPASMS [None]
  - NEURALGIA [None]
  - NEUROPATHY PERIPHERAL [None]
  - SCIATICA [None]
